FAERS Safety Report 4775508-X (Version None)
Quarter: 2005Q3

REPORT INFORMATION
  Report Type: 
  Country: None (occurrence: None)
  Receive Date: 20050922
  Receipt Date: 20050912
  Transmission Date: 20060218
  Serious: Yes (Hospitalization)
  Sender: FDA-Public Use
  Company Number: US-JNJFOC-20050902688

PATIENT
  Sex: Female
  Weight: 105.69 kg

DRUGS (3)
  1. REMICADE [Suspect]
     Indication: RHEUMATOID ARTHRITIS
     Route: 042
  2. DARVOCET-N 100 [Concomitant]
  3. DARVOCET-N 100 [Concomitant]

REACTIONS (2)
  - FALL [None]
  - JOINT DISLOCATION [None]
